FAERS Safety Report 12860857 (Version 2)
Quarter: 2017Q1

REPORT INFORMATION
  Report Type: Spontaneous
  Country: GB (occurrence: GB)
  Receive Date: 20161019
  Receipt Date: 20170221
  Transmission Date: 20170428
  Serious: Yes (Death, Other)
  Sender: FDA-Public Use
  Company Number: GB-ACCORD-044872

PATIENT
  Age: 13 Year
  Sex: Female

DRUGS (8)
  1. ANTILYMPHOCYTE IMMUNOGLOBULIN [Suspect]
     Active Substance: THYMOCYTE IMMUNE GLOBULIN NOS
     Indication: POLYARTHRITIS
  2. INFLIXIMAB [Suspect]
     Active Substance: INFLIXIMAB
     Indication: POLYARTHRITIS
  3. FLUDARABINE/FLUDARABINE PHOSPHATE [Suspect]
     Active Substance: FLUDARABINE PHOSPHATE
     Indication: POLYARTHRITIS
  4. CYCLOPHOSPHAMIDE/CYCLOPHOSPHAMIDE MONOHYDRATE [Suspect]
     Active Substance: CYCLOPHOSPHAMIDE
     Indication: POLYARTHRITIS
  5. RITUXIMAB [Suspect]
     Active Substance: RITUXIMAB
     Indication: POLYARTHRITIS
  6. METHOTREXATE. [Suspect]
     Active Substance: METHOTREXATE
     Indication: POLYARTHRITIS
  7. ETANERCEPT [Suspect]
     Active Substance: ETANERCEPT
     Indication: POLYARTHRITIS
  8. ANAKINRA [Suspect]
     Active Substance: ANAKINRA
     Indication: POLYARTHRITIS

REACTIONS (5)
  - Pancreatitis [Fatal]
  - Multiple organ dysfunction syndrome [Fatal]
  - Encephalopathy [Unknown]
  - Alpha haemolytic streptococcal infection [Unknown]
  - Bacterial sepsis [Unknown]
